FAERS Safety Report 5748493-1 (Version None)
Quarter: 2008Q2

REPORT INFORMATION
  Report Type: 
  Country: None (occurrence: None)
  Receive Date: 20080523
  Receipt Date: 20080515
  Transmission Date: 20081010
  Serious: Yes (Life-Threatening, Hospitalization)
  Sender: FDA-Public Use
  Company Number: JP-PFIZER INC-2008041814

PATIENT
  Sex: Male
  Weight: 55 kg

DRUGS (5)
  1. SULPERAZON [Suspect]
     Indication: CHOLANGITIS
     Route: 042
     Dates: start: 20071223, end: 20080508
  2. GEMZAR [Interacting]
     Indication: BILE DUCT CANCER
     Route: 042
     Dates: start: 20080508, end: 20080508
  3. DECADRON [Concomitant]
     Route: 042
     Dates: start: 20080508, end: 20080508
  4. GRANISETRON HCL [Concomitant]
     Route: 042
     Dates: start: 20080508, end: 20080508
  5. SODIUM CHLORIDE INJ [Concomitant]
     Route: 042
     Dates: start: 20080508, end: 20080508

REACTIONS (2)
  - ANAPHYLACTIC SHOCK [None]
  - DRUG INTERACTION [None]
